FAERS Safety Report 9367730 (Version 1)
Quarter: 2013Q2

REPORT INFORMATION
  Report Type: Spontaneous
  Country: US (occurrence: US)
  Receive Date: 20130625
  Receipt Date: 20130625
  Transmission Date: 20140414
  Serious: No
  Sender: FDA-Public Use
  Company Number: US-ASTELLAS-2012US007824

PATIENT
  Sex: Female
  Weight: 92 kg

DRUGS (7)
  1. VESICARE [Suspect]
     Indication: HYPERTONIC BLADDER
     Dosage: 10 MG, UID/QD
     Route: 048
  2. NOVOLOG MIX [Concomitant]
     Indication: DIABETES MELLITUS
     Dosage: 70/30 UNITS TWICE DAILY
     Route: 058
  3. OMEPRAZOLE [Concomitant]
     Indication: GASTROOESOPHAGEAL REFLUX DISEASE
     Dosage: 20 MG, UID/QD
     Route: 048
     Dates: start: 20120824
  4. GLIMEPIRIDE [Concomitant]
     Indication: DIABETES MELLITUS
     Dosage: 4 MG, BID
     Route: 048
  5. NIFEDIPINE [Concomitant]
     Indication: BLOOD PRESSURE
     Dosage: 30 MG, UID/QD
     Route: 048
  6. ALLOPURINOL [Concomitant]
     Indication: PRODUCT USED FOR UNKNOWN INDICATION
     Dosage: 300 MG, UID/QD
     Route: 048
  7. JANUVIA [Concomitant]
     Indication: DIABETES MELLITUS
     Dosage: 100 MG, UID/QD
     Route: 048

REACTIONS (4)
  - Cough [Unknown]
  - Gastric dilatation [Unknown]
  - Dry mouth [Unknown]
  - Constipation [Unknown]
